FAERS Safety Report 7725683-X (Version None)
Quarter: 2011Q3

REPORT INFORMATION
  Report Type: 
  Country: None (occurrence: None)
  Receive Date: 20110902
  Receipt Date: 20110818
  Transmission Date: 20111222
  Serious: Yes (Hospitalization, Other)
  Sender: FDA-Public Use
  Company Number: PHHY2011FR56483

PATIENT

DRUGS (9)
  1. CELLCEPT [Suspect]
     Indication: RENAL TRANSPLANT
     Dosage: 1250 MG, BID
     Dates: start: 20110301
  2. ATORVASTATIN CALCIUM [Concomitant]
     Dosage: 20 MG,
  3. FERROUS SULFATE TAB [Concomitant]
     Dosage: 1 DF, QD
  4. NEBIVOLOL HCL [Concomitant]
     Dosage: 5 MG, BID
  5. NEXIUM [Concomitant]
     Dosage: 40 MG, UNK
  6. LEVEMIR [Concomitant]
     Dosage: 16 IU,
  7. NEORAL [Suspect]
     Indication: RENAL TRANSPLANT
     Dosage: 60 MG, BID
     Dates: start: 20110301
  8. ARANESP [Concomitant]
     Dosage: 60 UG, WEEKLY
  9. RAMIPRIL [Concomitant]

REACTIONS (21)
  - DEHYDRATION [None]
  - KLEBSIELLA INFECTION [None]
  - ANORECTAL DISORDER [None]
  - RENAL FAILURE ACUTE [None]
  - ASTHENIA [None]
  - GENERAL PHYSICAL HEALTH DETERIORATION [None]
  - OEDEMA PERIPHERAL [None]
  - RECTAL HAEMORRHAGE [None]
  - HYPERKERATOSIS [None]
  - VOMITING [None]
  - RENAL TUBULAR DISORDER [None]
  - LIP DRY [None]
  - GRAFT LOSS [None]
  - HAEMOGLOBIN DECREASED [None]
  - IMMUNOSUPPRESSANT DRUG LEVEL DECREASED [None]
  - NEPHROTIC SYNDROME [None]
  - DIARRHOEA [None]
  - WEIGHT DECREASED [None]
  - BLOOD PRESSURE INCREASED [None]
  - FURUNCLE [None]
  - PAIN [None]
